FAERS Safety Report 20517708 (Version 1)
Quarter: 2022Q1

REPORT INFORMATION
  Report Type: Spontaneous
  Country: US (occurrence: None)
  Receive Date: 20220224
  Receipt Date: 20220224
  Transmission Date: 20220423
  Serious: Yes (Hospitalization)
  Sender: FDA-Public Use
  Company Number: None

PATIENT
  Age: 83 Year
  Sex: Male

DRUGS (1)
  1. APIXABAN [Suspect]
     Active Substance: APIXABAN
     Indication: Deep vein thrombosis
     Dosage: FREQUENCY : TWICE A DAY;?
     Route: 048
     Dates: start: 20210826, end: 20211101

REACTIONS (6)
  - Prostatomegaly [None]
  - Bladder hypertrophy [None]
  - Calculus bladder [None]
  - Deep vein thrombosis [None]
  - Urine leukocyte esterase positive [None]
  - Haematuria [None]

NARRATIVE: CASE EVENT DATE: 20211101
